FAERS Safety Report 9602483 (Version 1)
Quarter: 2013Q4

REPORT INFORMATION
  Report Type: Report from Study
  Country: US (occurrence: US)
  Receive Date: 20131007
  Receipt Date: 20131007
  Transmission Date: 20140711
  Serious: Yes (Hospitalization)
  Sender: FDA-Public Use
  Company Number: US-NOVOPROD-388451

PATIENT
  Age: 61 Year
  Sex: Male
  Weight: 197.78 kg

DRUGS (5)
  1. LIRAGLUTIDE FLEXPEN [Suspect]
     Indication: TYPE 2 DIABETES MELLITUS
     Dosage: 1.8,MG,QD
     Route: 058
     Dates: start: 20120303
  2. COUMADIN                           /00014802/ [Concomitant]
     Indication: ATRIAL FIBRILLATION
     Dosage: UNK
     Dates: end: 20130725
  3. COUMADIN                           /00014802/ [Concomitant]
     Dosage: 5 MG, HS
     Route: 048
     Dates: start: 20130728
  4. COUMADIN                           /00014802/ [Concomitant]
     Dosage: 12 MG, HS
     Route: 048
     Dates: start: 20130801
  5. COUMADIN                           /00014802/ [Concomitant]
     Dosage: 10 MG, HS
     Route: 048
     Dates: start: 20130802

REACTIONS (1)
  - Atrial fibrillation [Not Recovered/Not Resolved]
